FAERS Safety Report 8152440 (Version 2)
Quarter: 2013Q2

REPORT INFORMATION
  Report Type: Spontaneous
  Country: US (occurrence: US)
  Receive Date: 20110922
  Receipt Date: 20130521
  Transmission Date: 20140414
  Serious: No
  Sender: FDA-Public Use
  Company Number: US-ASTRAZENECA-2011SE11838

PATIENT
  Age: 58 Year
  Sex: Female
  Weight: 44 kg

DRUGS (9)
  1. SEROQUEL [Suspect]
     Indication: BIPOLAR I DISORDER
     Route: 048
     Dates: start: 201010
  2. NEXIUM [Suspect]
     Route: 048
  3. MIRTAZAPINE [Concomitant]
  4. CLONAZAPAM [Concomitant]
  5. METHADONE [Concomitant]
     Indication: BACK PAIN
  6. OXYCODONE [Concomitant]
     Indication: PAIN
  7. LEVOTHYROXINE [Concomitant]
     Indication: HYPOTHYROIDISM
  8. INTERFEURON [Concomitant]
     Indication: HEPATITIS C
  9. PEGASUS [Concomitant]
     Indication: HEPATITIS C

REACTIONS (9)
  - Eye disorder [Unknown]
  - Hepatitis C [Recovering/Resolving]
  - Muscle spasms [Not Recovered/Not Resolved]
  - Hypersomnia [Unknown]
  - Confusional state [Unknown]
  - Alopecia [Not Recovered/Not Resolved]
  - Constipation [Not Recovered/Not Resolved]
  - Dry mouth [Not Recovered/Not Resolved]
  - Paraesthesia [Not Recovered/Not Resolved]
